FAERS Safety Report 11870289 (Version 1)
Quarter: 2015Q4

REPORT INFORMATION
  Report Type: Spontaneous
  Country: US (occurrence: US)
  Receive Date: 20151228
  Receipt Date: 20151228
  Transmission Date: 20160305
  Serious: Yes (Hospitalization)
  Sender: FDA-Public Use
  Company Number: US-SA-2015SA095173

PATIENT
  Age: 54 Year
  Sex: Female
  Weight: 65 kg

DRUGS (3)
  1. INFLUENZA VACCINE [Suspect]
     Active Substance: INFLUENZA VIRUS VACCINE
     Indication: IMMUNISATION
     Route: 030
     Dates: start: 20150303, end: 20150303
  2. TUBERCULIN PPD [Suspect]
     Active Substance: TUBERCULIN PURIFIED PROTEIN DERIVATIVE
     Indication: TUBERCULIN TEST
     Route: 065
  3. ADACEL TDAP [Suspect]
     Active Substance: TETANUS TOXOID, REDUCED DIPHTHERIA TOXOID AND ACELLULAR PERTUSSIS VACCINE ADSORBED, TDAP
     Indication: IMMUNISATION
     Route: 030
     Dates: start: 20150303, end: 20150303

REACTIONS (20)
  - Eye swelling [Not Recovered/Not Resolved]
  - Epistaxis [Unknown]
  - Lip swelling [Not Recovered/Not Resolved]
  - Rash pruritic [Not Recovered/Not Resolved]
  - Sleep disorder [Not Recovered/Not Resolved]
  - Fatigue [Not Recovered/Not Resolved]
  - Skin discolouration [Not Recovered/Not Resolved]
  - Abnormal behaviour [Unknown]
  - Throat tightness [Not Recovered/Not Resolved]
  - Tachycardia [Not Recovered/Not Resolved]
  - Dysphonia [Not Recovered/Not Resolved]
  - Glossodynia [Not Recovered/Not Resolved]
  - Urticaria [Not Recovered/Not Resolved]
  - Angioedema [Not Recovered/Not Resolved]
  - Back disorder [Unknown]
  - Migraine [Unknown]
  - Arthralgia [Unknown]
  - Pharyngeal oedema [Not Recovered/Not Resolved]
  - Skin lesion [Not Recovered/Not Resolved]
  - Lymphadenopathy [Unknown]

NARRATIVE: CASE EVENT DATE: 20150304
